FAERS Safety Report 14586233 (Version 1)
Quarter: 2018Q1

REPORT INFORMATION
  Report Type: Spontaneous
  Country: JP (occurrence: JP)
  Receive Date: 20180301
  Receipt Date: 20180301
  Transmission Date: 20180509
  Serious: Yes (Other)
  Sender: FDA-Public Use
  Company Number: JP-ASTRAZENECA-2018SE24940

PATIENT
  Sex: Male

DRUGS (3)
  1. INSULIN [Concomitant]
     Active Substance: INSULIN NOS
     Indication: DIABETES MELLITUS
     Dosage: DOSE UNKNOWN
     Route: 065
  2. NEXIUM [Suspect]
     Active Substance: ESOMEPRAZOLE MAGNESIUM
     Indication: GASTRIC ULCER
     Dosage: DOSE UNKNOWN, AFTERNOON
     Route: 048
     Dates: start: 201508
  3. IRESSA [Suspect]
     Active Substance: GEFITINIB
     Indication: LUNG NEOPLASM MALIGNANT
     Route: 048
     Dates: start: 2015

REACTIONS (7)
  - Carcinoembryonic antigen increased [Unknown]
  - Product use issue [Unknown]
  - Gastric cancer [Unknown]
  - Blood glucose increased [Unknown]
  - Back pain [Unknown]
  - Hypoglycaemia [Unknown]
  - Colon cancer [Unknown]
